FAERS Safety Report 16898117 (Version 1)
Quarter: 2019Q4

REPORT INFORMATION
  Report Type: Spontaneous
  Country: US (occurrence: US)
  Receive Date: 20191009
  Receipt Date: 20191009
  Transmission Date: 20200122
  Serious: Yes (Other)
  Sender: FDA-Public Use
  Company Number: US-COLGATE PALMOLIVE COMPANY-20191002532

PATIENT
  Sex: Female

DRUGS (1)
  1. COLGATE KIDS WATERMELON FLAVOR [Suspect]
     Active Substance: SODIUM FLUORIDE
     Dosage: UNKNOWN DOSE

REACTIONS (3)
  - Peripheral swelling [Unknown]
  - Lip swelling [Unknown]
  - Eye swelling [Unknown]
